FAERS Safety Report 6349760-3 (Version None)
Quarter: 2009Q3

REPORT INFORMATION
  Report Type: 
  Country: None (occurrence: None)
  Receive Date: 20090911
  Receipt Date: 20090910
  Transmission Date: 20100115
  Serious: Yes (Death, Hospitalization, Other)
  Sender: FDA-Public Use
  Company Number: PHHY2009BR38678

PATIENT
  Sex: Male

DRUGS (2)
  1. FORASEQ [Suspect]
     Indication: DYSPNOEA
     Dosage: UNK
  2. ALOIS [Concomitant]
     Indication: DEMENTIA ALZHEIMER'S TYPE

REACTIONS (4)
  - DEMENTIA ALZHEIMER'S TYPE [None]
  - LUNG DISORDER [None]
  - PNEUMONIA BACTERIAL [None]
  - TREATMENT NONCOMPLIANCE [None]
